FAERS Safety Report 15546730 (Version 1)
Quarter: 2018Q4

REPORT INFORMATION
  Report Type: Spontaneous
  Country: GB (occurrence: GB)
  Receive Date: 20181024
  Receipt Date: 20181024
  Transmission Date: 20190205
  Serious: Yes (Other)
  Sender: FDA-Public Use
  Company Number: GB-PFIZER INC-2018425190

PATIENT
  Age: 51 Year
  Sex: Female
  Weight: 94.79 kg

DRUGS (7)
  1. METFORMIN [Concomitant]
     Active Substance: METFORMIN HYDROCHLORIDE
  2. CHAMPIX [Suspect]
     Active Substance: VARENICLINE TARTRATE
     Indication: SMOKING CESSATION THERAPY
     Dosage: 2 MG, 1X/DAY
     Route: 048
     Dates: start: 20180904, end: 20180921
  3. NAPROXEN. [Concomitant]
     Active Substance: NAPROXEN
  4. GABAPENTIN. [Concomitant]
     Active Substance: GABAPENTIN
  5. OMEPRAZOLE. [Concomitant]
     Active Substance: OMEPRAZOLE
  6. DULOXETINE. [Concomitant]
     Active Substance: DULOXETINE
  7. PARACETAMOL [Concomitant]
     Active Substance: ACETAMINOPHEN

REACTIONS (3)
  - Malaise [Recovered/Resolved]
  - Diarrhoea [Recovered/Resolved with Sequelae]
  - Weight decreased [Unknown]

NARRATIVE: CASE EVENT DATE: 20180906
